FAERS Safety Report 26009084 (Version 1)
Quarter: 2025Q4

REPORT INFORMATION
  Report Type: Report from Study
  Country: US (occurrence: US)
  Receive Date: 20251107
  Receipt Date: 20251107
  Transmission Date: 20260117
  Serious: Yes (Other)
  Sender: JOHNSON AND JOHNSON
  Company Number: US-JNJFOC-20251037749

PATIENT
  Age: 3 Decade

DRUGS (1)
  1. REMICADE [Suspect]
     Active Substance: INFLIXIMAB
     Indication: Product used for unknown indication
     Route: 041
     Dates: start: 2001

REACTIONS (5)
  - Intestinal resection [Unknown]
  - Lip swelling [Unknown]
  - Pain [Unknown]
  - Rash [Unknown]
  - Hypokinesia [Unknown]

NARRATIVE: CASE EVENT DATE: 20010101
